FAERS Safety Report 12611785 (Version 1)
Quarter: 2016Q3

REPORT INFORMATION
  Report Type: Spontaneous
  Country: US (occurrence: US)
  Receive Date: 20160801
  Receipt Date: 20160801
  Transmission Date: 20161109
  Serious: No
  Sender: FDA-Public Use
  Company Number: US-PFIZER INC-2867391

PATIENT
  Age: 85 Year
  Sex: Male

DRUGS (1)
  1. METHOTREXATE SODIUM. [Suspect]
     Active Substance: METHOTREXATE SODIUM
     Indication: PRODUCT USED FOR UNKNOWN INDICATION
     Dosage: 0.6 ML, EVERY WEEK
     Dates: start: 20150507, end: 20150507

REACTIONS (3)
  - Incorrect dose administered [Recovered/Resolved]
  - No adverse event [Unknown]
  - Product packaging quantity issue [Recovered/Resolved]

NARRATIVE: CASE EVENT DATE: 20150507
